FAERS Safety Report 7352432-X (Version None)
Quarter: 2011Q1

REPORT INFORMATION
  Report Type: 
  Country: None (occurrence: None)
  Receive Date: 20110315
  Receipt Date: 20110310
  Transmission Date: 20110831
  Serious: No
  Sender: FDA-Public Use
  Company Number: US-TEVA-271005USA

PATIENT
  Sex: Female
  Weight: 113.5 kg

DRUGS (3)
  1. PLAN B ONE-STEP [Suspect]
     Indication: POST COITAL CONTRACEPTION
     Route: 048
     Dates: start: 20110223, end: 20110223
  2. LISINOPRIL [Concomitant]
     Indication: BLOOD PRESSURE
     Route: 048
  3. ENALAPRIL [Concomitant]
     Indication: BLOOD PRESSURE
     Route: 048

REACTIONS (1)
  - NAUSEA [None]
